FAERS Safety Report 6034040-6 (Version None)
Quarter: 2009Q1

REPORT INFORMATION
  Report Type: 
  Country: None (occurrence: None)
  Receive Date: 20090112
  Receipt Date: 20090106
  Transmission Date: 20090719
  Serious: Yes (Hospitalization)
  Sender: FDA-Public Use
  Company Number: US-BIOGENIDEC-2009BI000699

PATIENT
  Age: 0 Day
  Sex: Female

DRUGS (3)
  1. AVONEX [Suspect]
     Indication: DRUG EXPOSURE DURING PREGNANCY
     Route: 064
     Dates: start: 19980101, end: 20030101
  2. AVONEX [Suspect]
     Route: 030
     Dates: start: 20040701, end: 20040701
  3. AVONEX [Suspect]
     Route: 030
     Dates: start: 20040101

REACTIONS (1)
  - UMBILICAL CORD AROUND NECK [None]
